FAERS Safety Report 17409596 (Version 2)
Quarter: 2020Q1

REPORT INFORMATION
  Report Type: Spontaneous
  Country: JP (occurrence: JP)
  Receive Date: 20200212
  Receipt Date: 20200313
  Transmission Date: 20200409
  Serious: Yes (Other)
  Sender: FDA-Public Use
  Company Number: JP-ASTRAZENECA-2020SE19883

PATIENT
  Age: 60 Year
  Sex: Female
  Weight: 50 kg

DRUGS (2)
  1. IMFINZI [Suspect]
     Active Substance: DURVALUMAB
     Indication: NON-SMALL CELL LUNG CANCER
     Route: 042
     Dates: start: 20190707, end: 20190814
  2. STEROID [Concomitant]
     Active Substance: UNSPECIFIED INGREDIENT
     Indication: PNEUMONITIS
     Route: 065

REACTIONS (3)
  - Malignant neoplasm progression [Unknown]
  - Radiation pneumonitis [Recovering/Resolving]
  - Metastases to central nervous system [Unknown]

NARRATIVE: CASE EVENT DATE: 20190814
